FAERS Safety Report 12750913 (Version 5)
Quarter: 2018Q2

REPORT INFORMATION
  Report Type: Spontaneous
  Country: DE (occurrence: DE)
  Receive Date: 20160915
  Receipt Date: 20180511
  Transmission Date: 20180711
  Serious: Yes (Life-Threatening, Hospitalization, Other)
  Sender: FDA-Public Use
  Company Number: DE-VIIV HEALTHCARE LIMITED-DE2016GSK133551

PATIENT
  Age: 65 Year
  Sex: Male
  Weight: 83 kg

DRUGS (9)
  1. EDURANT [Suspect]
     Active Substance: RILPIVIRINE HYDROCHLORIDE
     Indication: HIV INFECTION
     Dosage: 25 MG, QD
     Route: 048
     Dates: start: 20160805
  2. HCT [Concomitant]
     Active Substance: HYDROCHLOROTHIAZIDE
     Indication: PRODUCT USED FOR UNKNOWN INDICATION
     Dosage: 12.5 MG, QD
  3. TRIUMEQ [Suspect]
     Active Substance: ABACAVIR SULFATE\DOLUTEGRAVIR SODIUM\LAMIVUDINE
     Indication: HIV INFECTION
     Dosage: 1 DF, QD
     Dates: start: 20160805
  4. AMLODIPIN [Concomitant]
     Active Substance: AMLODIPINE BESYLATE
     Indication: PRODUCT USED FOR UNKNOWN INDICATION
     Dosage: 5 MG, QD
  5. AMPHO-MORONAL [Concomitant]
     Active Substance: AMPHOTERICIN B
     Indication: PRODUCT USED FOR UNKNOWN INDICATION
     Dosage: 1 DF, TID
  6. GABAPENTIN. [Concomitant]
     Active Substance: GABAPENTIN
     Indication: PRODUCT USED FOR UNKNOWN INDICATION
     Dosage: 100 MG, TID
  7. CANDESARTAN. [Concomitant]
     Active Substance: CANDESARTAN
     Indication: HYPERTENSION
     Dosage: 16 MG, QD
     Dates: start: 20160624
  8. IMIGRAN NOVUM [Concomitant]
     Active Substance: SUMATRIPTAN SUCCINATE
     Indication: MIGRAINE
     Dosage: UNK UNK, PRN
  9. PRAVASTATIN AL [Concomitant]
     Indication: PRODUCT USED FOR UNKNOWN INDICATION
     Dosage: 20 MG, UNK

REACTIONS (20)
  - Cranial nerve disorder [Unknown]
  - Hypertensive heart disease [Unknown]
  - Cerebellar infarction [Not Recovered/Not Resolved]
  - Body temperature increased [Unknown]
  - Pneumonia [Unknown]
  - Arterial occlusive disease [Unknown]
  - Hyperlipidaemia [Unknown]
  - Carotid artery stenosis [Unknown]
  - Stenosis [Unknown]
  - Vertigo [Unknown]
  - Vomiting [Unknown]
  - Balance disorder [Unknown]
  - Cerebellar haemorrhage [Unknown]
  - Hyperhomocysteinaemia [Unknown]
  - Arteriosclerosis [Unknown]
  - Ataxia [Unknown]
  - Quadrantanopia [Unknown]
  - Nausea [Unknown]
  - Headache [Unknown]
  - Gait disturbance [Unknown]

NARRATIVE: CASE EVENT DATE: 20160830
